FAERS Safety Report 4527801-3 (Version None)
Quarter: 2004Q4

REPORT INFORMATION
  Report Type: 
  Country: None (occurrence: None)
  Receive Date: 20041123
  Receipt Date: 20040305
  Transmission Date: 20050328
  Serious: Yes (Hospitalization)
  Sender: FDA-Public Use
  Company Number: ATO-04-0208(0)

PATIENT
  Age: 76 Year
  Sex: Male
  Weight: 85.7298 kg

DRUGS (14)
  1. TRISENOX [Suspect]
  2. LANOXIN [Concomitant]
  3. SYNTHROID [Concomitant]
  4. LIPITOR [Concomitant]
  5. TERAZOSIN HCL [Concomitant]
  6. ATENOLOL [Concomitant]
  7. LASIX [Concomitant]
  8. ASPIRIN [Concomitant]
  9. ATIVAN [Concomitant]
  10. DARVOCET-N 100 [Concomitant]
  11. DIFLUCAN [Concomitant]
  12. ACYCLOVIR [Concomitant]
  13. LEVAQUIN [Concomitant]
  14. NEULASTA [Concomitant]

REACTIONS (1)
  - CONFUSIONAL STATE [None]
